FAERS Safety Report 15661057 (Version 1)
Quarter: 2020Q3

REPORT INFORMATION
  Report Type: Report from Study
  Country: DE (occurrence: DE)
  Receive Date: 20181127
  Receipt Date: 20181127
  Transmission Date: 20201105
  Serious: Yes (Hospitalization)
  Sender: FDA-Public Use
  Company Number: DE-JNJFOC-20181130437

PATIENT
  Age: 4 Decade
  Sex: Female
  Weight: 82 kg

DRUGS (3)
  1. TRABECTEDIN [Suspect]
     Active Substance: TRABECTEDIN
     Indication: EPITHELIOID SARCOMA
     Dosage: CYCLE 1
     Route: 042
     Dates: start: 20180912, end: 20180912
  2. TRABECTEDIN [Suspect]
     Active Substance: TRABECTEDIN
     Route: 042
  3. TRABECTEDIN [Suspect]
     Active Substance: TRABECTEDIN
     Route: 042

REACTIONS (1)
  - White blood cell count decreased [Recovered/Resolved]

NARRATIVE: CASE EVENT DATE: 20181004
